FAERS Safety Report 17237144 (Version 1)
Quarter: 2020Q1

REPORT INFORMATION
  Report Type: Spontaneous
  Country: US (occurrence: US)
  Receive Date: 20200106
  Receipt Date: 20200106
  Transmission Date: 20200409
  Serious: No
  Sender: FDA-Public Use
  Company Number: US-PFIZER INC-2019535631

PATIENT
  Age: 53 Year
  Sex: Female

DRUGS (1)
  1. LYRICA [Suspect]
     Active Substance: PREGABALIN
     Indication: FIBROMYALGIA
     Dosage: 225 MG, DAILY, [1 TAB PO QAM [ORAL, IN MORNING] + 2 TAB PO QHS [ORAL, AT NIGHT]]
     Route: 048

REACTIONS (1)
  - Hypoacusis [Unknown]
